FAERS Safety Report 20107694 (Version 1)
Quarter: 2021Q4

REPORT INFORMATION
  Report Type: Spontaneous
  Country: US (occurrence: US)
  Receive Date: 20211124
  Receipt Date: 20211124
  Transmission Date: 20220303
  Serious: No
  Sender: FDA-Public Use
  Company Number: US-PERRIGO-20US014656

PATIENT
  Age: 80 Year
  Sex: Male
  Weight: 78.912 kg

DRUGS (14)
  1. POLYETHYLENE GLYCOL 3350 [Suspect]
     Active Substance: POLYETHYLENE GLYCOL 3350
     Indication: Constipation prophylaxis
     Dosage: 17 G, QD, PRN
     Route: 048
  2. FISH OIL [Concomitant]
     Active Substance: FISH OIL
     Indication: Routine health maintenance
     Dosage: UNK
     Route: 065
     Dates: start: 2010
  3. FISH OIL [Concomitant]
     Active Substance: FISH OIL
     Indication: Blood triglycerides increased
  4. ATORVASTATIN [Concomitant]
     Active Substance: ATORVASTATIN
     Indication: Hypertension
     Dosage: UNK
     Route: 065
  5. PANTOPRAZOLE [Concomitant]
     Active Substance: PANTOPRAZOLE
     Indication: Digestive enzyme decreased
     Dosage: UNK
     Route: 065
     Dates: start: 2019
  6. CREON [Concomitant]
     Active Substance: PANCRELIPASE AMYLASE\PANCRELIPASE LIPASE\PANCRELIPASE PROTEASE
     Indication: Dyspepsia
     Dosage: UNK, TID WITH MEALS
     Route: 065
  7. FINASTERIDE [Concomitant]
     Active Substance: FINASTERIDE
     Indication: Prostate examination abnormal
     Dosage: UNK
     Route: 065
  8. FLOMAX                             /00889901/ [Concomitant]
     Indication: Prostate examination abnormal
     Dosage: UNK
     Route: 065
  9. ASPIRIN [Concomitant]
     Active Substance: ASPIRIN
     Indication: Routine health maintenance
     Dosage: UNK
     Route: 065
  10. VITAMINS [Concomitant]
     Active Substance: VITAMINS
     Indication: Supplementation therapy
     Dosage: UNK
     Route: 065
  11. VITAMIN B3 [Concomitant]
     Active Substance: NIACIN
     Indication: Supplementation therapy
     Dosage: UNK
     Route: 065
  12. VITAMIN D                          /00107901/ [Concomitant]
     Indication: Supplementation therapy
     Dosage: UNK
     Route: 065
  13. VITAMIN B12                        /00056201/ [Concomitant]
     Indication: Supplementation therapy
     Dosage: UNK
     Route: 065
  14. BIOTIN [Concomitant]
     Active Substance: BIOTIN
     Indication: Product used for unknown indication
     Dosage: UNK
     Route: 065
     Dates: start: 2019

REACTIONS (3)
  - Therapeutic product effect decreased [Unknown]
  - Incorrect product administration duration [Not Recovered/Not Resolved]
  - Off label use [Not Recovered/Not Resolved]

NARRATIVE: CASE EVENT DATE: 20201007
